FAERS Safety Report 9624865 (Version 2)
Quarter: 2016Q1

REPORT INFORMATION
  Report Type: Report from Study
  Country: US (occurrence: US)
  Receive Date: 20131016
  Receipt Date: 20160310
  Transmission Date: 20160526
  Serious: Yes (Other)
  Sender: FDA-Public Use
  Company Number: US-ROCHE-1286661

PATIENT
  Age: 51 Year
  Sex: Male

DRUGS (4)
  1. PEGASYS [Suspect]
     Active Substance: PEGINTERFERON ALFA-2A
     Indication: CHRONIC HEPATITIS C
     Route: 065
     Dates: start: 201306, end: 201307
  2. COPEGUS [Suspect]
     Active Substance: RIBAVIRIN
     Indication: CHRONIC HEPATITIS C
     Route: 065
     Dates: start: 201306, end: 201307
  3. LACTULOSE. [Concomitant]
     Active Substance: LACTULOSE
     Dosage: 2-3 TBS DAILY
     Route: 048
  4. HYDROXYZINE [Concomitant]
     Active Substance: HYDROXYZINE\HYDROXYZINE HYDROCHLORIDE

REACTIONS (11)
  - Terminal state [Unknown]
  - Thought blocking [Not Recovered/Not Resolved]
  - Weight decreased [Recovering/Resolving]
  - Vision blurred [Not Recovered/Not Resolved]
  - Cold sweat [Unknown]
  - Encephalitis [Not Recovered/Not Resolved]
  - Nausea [Not Recovered/Not Resolved]
  - No therapeutic response [Not Recovered/Not Resolved]
  - Ammonia abnormal [Not Recovered/Not Resolved]
  - Influenza [Unknown]
  - Hypophagia [Not Recovered/Not Resolved]

NARRATIVE: CASE EVENT DATE: 201306
